FAERS Safety Report 5724845-0 (Version None)
Quarter: 2008Q2

REPORT INFORMATION
  Report Type: 
  Country: None (occurrence: None)
  Receive Date: 20080501
  Receipt Date: 20080417
  Transmission Date: 20081010
  Serious: Yes (Hospitalization)
  Sender: FDA-Public Use
  Company Number: CA-BAYER-200711768GDS

PATIENT
  Age: 65 Year
  Sex: Male
  Weight: 70 kg

DRUGS (6)
  1. ALKA-SELTZER [Suspect]
     Indication: STOMACH DISCOMFORT
     Route: 048
     Dates: start: 20060424, end: 20060424
  2. ADVAIR DISKUS 100/50 [Concomitant]
     Indication: DRUG USE FOR UNKNOWN INDICATION
     Route: 048
     Dates: start: 20040101
  3. DRISTAN [Concomitant]
     Indication: DRUG USE FOR UNKNOWN INDICATION
     Route: 045
  4. FLONASE [Concomitant]
     Indication: DRUG USE FOR UNKNOWN INDICATION
     Route: 065
  5. VENTOLIN [Concomitant]
     Indication: DRUG USE FOR UNKNOWN INDICATION
     Route: 065
  6. HEPARIN [Concomitant]

REACTIONS (6)
  - ASTHMA [None]
  - BLOOD PRESSURE INCREASED [None]
  - DYSPNOEA [None]
  - NASAL CONGESTION [None]
  - THROAT TIGHTNESS [None]
  - WHEEZING [None]
